FAERS Safety Report 25025182 (Version 2)
Quarter: 2025Q4

REPORT INFORMATION
  Report Type: Spontaneous
  Country: US (occurrence: US)
  Receive Date: 20250228
  Receipt Date: 20251121
  Transmission Date: 20260117
  Serious: No
  Sender: BIOMARIN
  Company Number: US-SA-2025SA053663

PATIENT
  Age: 1 Year
  Sex: Male

DRUGS (2)
  1. LARONIDASE [Suspect]
     Active Substance: LARONIDASE
     Indication: Mucopolysaccharidosis I
     Dosage: 5.8 (TOTAL DOSE ADMINISTERED), QW
     Dates: start: 2016, end: 20161218
  2. LARONIDASE [Suspect]
     Active Substance: LARONIDASE
     Dosage: 20.3 TOTAL, QW
     Dates: start: 201605, end: 20161218

REACTIONS (2)
  - Infusion related reaction [Recovered/Resolved]
  - Drug hypersensitivity [Unknown]

NARRATIVE: CASE EVENT DATE: 20160101
